FAERS Safety Report 5403473-0 (Version None)
Quarter: 2007Q3

REPORT INFORMATION
  Report Type: 
  Country: None (occurrence: None)
  Receive Date: 20070713
  Receipt Date: 20061018
  Transmission Date: 20080115
  Serious: Yes (Other)
  Sender: FDA-Public Use
  Company Number: 468088

PATIENT
  Age: 74 Year
  Sex: Female
  Weight: 80.3 kg

DRUGS (5)
  1. BONIVA [Suspect]
     Indication: OSTEOPOROSIS
     Dosage: 150 MG 1 PER MONTH ORAL
     Route: 048
     Dates: start: 20061013, end: 20061013
  2. PRINIVIL [Concomitant]
  3. ASPIRIN [Concomitant]
  4. POTASSIUM (POTASSIUM NOS) [Concomitant]
  5. RYTHMOL [Concomitant]

REACTIONS (3)
  - HEAD DISCOMFORT [None]
  - HYPERTENSION [None]
  - VISION BLURRED [None]
